FAERS Safety Report 21860376 (Version 1)
Quarter: 2023Q1

REPORT INFORMATION
  Report Type: Spontaneous
  Country: CZ (occurrence: CZ)
  Receive Date: 20230113
  Receipt Date: 20230113
  Transmission Date: 20230417
  Serious: Yes (Life-Threatening, Other)
  Sender: FDA-Public Use
  Company Number: CZ-PFM-2022-06066

PATIENT
  Age: 25 Year
  Sex: Female

DRUGS (8)
  1. THEOPHYLLINE ANHYDROUS [Suspect]
     Active Substance: THEOPHYLLINE ANHYDROUS
     Indication: Status asthmaticus
     Dosage: 720 MG/D
     Route: 065
  2. TERBUTALINE [Suspect]
     Active Substance: TERBUTALINE
     Indication: Status asthmaticus
     Dosage: 2 MG/D
     Route: 042
  3. ADRENALIN [Suspect]
     Active Substance: EPINEPHRINE
     Indication: Status asthmaticus
     Dosage: 10 ?G
     Route: 042
  4. METHYLPREDNISOLONE [Concomitant]
     Active Substance: METHYLPREDNISOLONE
     Indication: Status asthmaticus
     Dosage: 1000 MG, 3 DAY
     Route: 042
  5. METHYLPREDNISOLONE [Concomitant]
     Active Substance: METHYLPREDNISOLONE
     Dosage: 60 MG, FROM DAY4
     Route: 065
  6. ALBUTEROL [Concomitant]
     Active Substance: ALBUTEROL
     Indication: Status asthmaticus
     Dosage: UNK
     Route: 065
  7. FENOTEROL\IPRATROPIUM BROMIDE [Concomitant]
     Active Substance: FENOTEROL\IPRATROPIUM BROMIDE
     Indication: Status asthmaticus
     Dosage: UNK
     Route: 065
  8. MAGNESIUM SULFATE [Concomitant]
     Active Substance: MAGNESIUM SULFATE
     Indication: Status asthmaticus
     Dosage: 2 G,THEN ADJUSTED TO HIGH NORMAL PLASMA LEVEL.
     Route: 042

REACTIONS (1)
  - Respiratory acidosis [Recovered/Resolved]
